FAERS Safety Report 4864825-0 (Version None)
Quarter: 2005Q4

REPORT INFORMATION
  Report Type: 
  Country: None (occurrence: None)
  Receive Date: 20051201
  Receipt Date: 20050711
  Transmission Date: 20060501
  Serious: No
  Sender: FDA-Public Use
  Company Number: 2005PV000283

PATIENT
  Age: 60 Year
  Sex: Male
  Weight: 107.5025 kg

DRUGS (6)
  1. BYETTA [Suspect]
     Indication: DIABETES MELLITUS NON-INSULIN-DEPENDENT
     Dosage: 5 MG BID SC
     Route: 058
     Dates: start: 20050707
  2. AMARYL [Concomitant]
  3. AVANDIA [Concomitant]
  4. METFORMIN HCL [Concomitant]
  5. LISINOPRIL W/HYDROCHLOROTHIAZIDE [Concomitant]
  6. ATENOLOL [Concomitant]

REACTIONS (2)
  - INJECTION SITE ERYTHEMA [None]
  - INJECTION SITE HAEMORRHAGE [None]
